FAERS Safety Report 6303611-1 (Version None)
Quarter: 2009Q3

REPORT INFORMATION
  Report Type: 
  Country: None (occurrence: None)
  Receive Date: 20090810
  Receipt Date: 20090731
  Transmission Date: 20100115
  Serious: Yes (Other)
  Sender: FDA-Public Use
  Company Number: US-AMGEN-QUU358395

PATIENT
  Sex: Female

DRUGS (2)
  1. ENBREL [Suspect]
     Indication: RHEUMATOID ARTHRITIS
     Route: 058
     Dates: start: 20060720
  2. METHOTREXATE [Concomitant]

REACTIONS (9)
  - ALOPECIA [None]
  - BLADDER SPASM [None]
  - FAECAL INCONTINENCE [None]
  - NEUROGENIC BLADDER [None]
  - NYSTAGMUS [None]
  - PETIT MAL EPILEPSY [None]
  - SKIN INFECTION [None]
  - UPPER RESPIRATORY TRACT INFECTION [None]
  - VAGINAL INFECTION [None]
